FAERS Safety Report 15121486 (Version 1)
Quarter: 2018Q3

REPORT INFORMATION
  Report Type: Report from Study
  Country: IT (occurrence: IT)
  Receive Date: 20180709
  Receipt Date: 20180709
  Transmission Date: 20181010
  Serious: Yes (Hospitalization)
  Sender: FDA-Public Use
  Company Number: IT-MYLANLABS-2018M1048461

PATIENT
  Age: 18 Year
  Sex: Male
  Weight: 76 kg

DRUGS (3)
  1. DEPAKIN CHRONO                     /00228502/ [Suspect]
     Active Substance: VALPROATE SODIUM
     Indication: BORDERLINE PERSONALITY DISORDER
     Dosage: 7 DF, TOTAL
     Route: 048
     Dates: start: 20180326, end: 20180326
  2. OLANZAPINE. [Suspect]
     Active Substance: OLANZAPINE
     Indication: MANIA
     Dosage: 6 DF, TOTAL
     Route: 048
     Dates: start: 20180326, end: 20180326
  3. EUTIROX [Concomitant]
     Active Substance: LEVOTHYROXINE SODIUM
     Indication: HYPOTHYROIDISM
     Route: 048

REACTIONS (3)
  - Drug abuse [Unknown]
  - Pain in extremity [Unknown]
  - Somnolence [Unknown]

NARRATIVE: CASE EVENT DATE: 20180327
